FAERS Safety Report 8621028-1 (Version None)
Quarter: 2012Q3

REPORT INFORMATION
  Report Type: 
  Country: None (occurrence: None)
  Receive Date: 20120824
  Receipt Date: 20120821
  Transmission Date: 20120928
  Serious: Yes (Other)
  Sender: FDA-Public Use
  Company Number: JP-009507513-1207JPN000643

PATIENT

DRUGS (12)
  1. PEG-INTRON [Suspect]
     Indication: HEPATITIS C
     Dosage: 1.5MCG/KG/WEEK
     Route: 058
     Dates: start: 20120428
  2. REBETOL [Suspect]
     Indication: HEPATITIS C
     Dosage: 800 MG, QD
     Route: 048
     Dates: start: 20120428, end: 20120510
  3. TELAVIC [Suspect]
     Indication: HEPATITIS C
     Dosage: 2250 MG, QD
     Route: 048
     Dates: start: 20120428, end: 20120503
  4. TELAVIC [Suspect]
     Dosage: 1000 MG, QD
     Route: 048
     Dates: start: 20120601, end: 20120621
  5. TELAVIC [Suspect]
     Dosage: 1500 MG, QD
     Dates: start: 20120622, end: 20120720
  6. FEROTYM [Concomitant]
     Indication: IRON DEFICIENCY ANAEMIA
     Route: 048
  7. REBETOL [Suspect]
     Dosage: 400 MG, QD
     Route: 048
     Dates: start: 20120511, end: 20120531
  8. LIVALO [Concomitant]
     Indication: HYPERLIPIDAEMIA
     Route: 048
  9. TELAVIC [Suspect]
     Dosage: 1500 MG, QD
     Route: 048
     Dates: start: 20120504, end: 20120531
  10. EPADEL S [Concomitant]
     Indication: HYPERLIPIDAEMIA
     Route: 048
  11. REBETOL [Suspect]
     Dosage: 200 MG, QD
     Dates: start: 20120601
  12. CLARITIN REDITABS [Concomitant]
     Indication: PROPHYLAXIS
     Route: 048

REACTIONS (2)
  - RENAL DISORDER [None]
  - ANAEMIA [None]
